FAERS Safety Report 4457771-8 (Version None)
Quarter: 2004Q3

REPORT INFORMATION
  Report Type: 
  Country: None (occurrence: None)
  Receive Date: 20040917
  Receipt Date: 20031021
  Transmission Date: 20050211
  Serious: Yes (Death)
  Sender: FDA-Public Use
  Company Number: NSADSS2003022239

PATIENT
  Age: 36 Year
  Sex: Female
  Weight: 96.1626 kg

DRUGS (3)
  1. TOPAMAX [Suspect]
     Indication: EPILEPSY
     Dosage: 200 MG, 2 IN 1 DAY
  2. DILANTIN [Concomitant]
  3. DEPO-PROVERA (MEDROXYPROGESTERONE ACETATE) UNSPECIFIED [Concomitant]

REACTIONS (2)
  - CONVULSION [None]
  - TRACHEOBRONCHITIS [None]
